FAERS Safety Report 12128125 (Version 1)
Quarter: 2016Q1

REPORT INFORMATION
  Report Type: Spontaneous
  Country: JP (occurrence: JP)
  Receive Date: 20160229
  Receipt Date: 20160229
  Transmission Date: 20160526
  Serious: Yes (Hospitalization)
  Sender: FDA-Public Use
  Company Number: JP-PFIZER INC-2016111732

PATIENT
  Age: 5 Decade
  Sex: Male

DRUGS (1)
  1. LYRICA [Suspect]
     Active Substance: PREGABALIN
     Indication: PAIN
     Dosage: 300 MG, DAILY (12-25MG CAPSULES DIVIDED IN THREE DOSES; ADJUSTED FOR PAIN)
     Route: 048

REACTIONS (2)
  - Condition aggravated [Unknown]
  - Blood uric acid increased [Unknown]
